FAERS Safety Report 6703766-0 (Version None)
Quarter: 2010Q2

REPORT INFORMATION
  Report Type: 
  Country: None (occurrence: None)
  Receive Date: 20100428
  Receipt Date: 20100406
  Transmission Date: 20101027
  Serious: Yes (Death)
  Sender: FDA-Public Use
  Company Number: 568366

PATIENT
  Age: 7 Month
  Sex: Female
  Weight: 6.2 kg

DRUGS (3)
  1. MIDAZOLAM HCL [Suspect]
     Dosage: INTRAVENOUS
     Route: 042
     Dates: start: 20090729
  2. MORPHINE [Concomitant]
  3. PAVULON [Concomitant]

REACTIONS (6)
  - DEVICE DISLOCATION [None]
  - DISORIENTATION [None]
  - DRUG INEFFECTIVE [None]
  - OXYGEN SATURATION DECREASED [None]
  - RESPIRATORY ACIDOSIS [None]
  - TRACHEAL OEDEMA [None]
